FAERS Safety Report 18411529 (Version 1)
Quarter: 2020Q4

REPORT INFORMATION
  Report Type: Spontaneous
  Country: US (occurrence: US)
  Receive Date: 20201021
  Receipt Date: 20201021
  Transmission Date: 20210114
  Serious: Yes (Death)
  Sender: FDA-Public Use
  Company Number: US-CELGENEUS-USA-20201004846

PATIENT
  Age: 71 Year
  Sex: Female
  Weight: 48.12 kg

DRUGS (9)
  1. SIMVASTATIN. [Concomitant]
     Active Substance: SIMVASTATIN
     Indication: LUNG DISORDER
     Route: 065
  2. ASPIRIN. [Concomitant]
     Active Substance: ASPIRIN
     Indication: PAIN
     Route: 065
  3. PROLIA [Concomitant]
     Active Substance: DENOSUMAB
     Indication: OSTEOPOROSIS
     Route: 065
  4. REVLIMID [Suspect]
     Active Substance: LENALIDOMIDE
     Indication: PLASMA CELL MYELOMA
     Dosage: 10 MILLIGRAM
     Route: 048
     Dates: start: 20200108
  5. VITAMIN D [Concomitant]
     Active Substance: VITAMIN D NOS
     Indication: SUPPLEMENTATION THERAPY
     Route: 065
  6. PEPCID [Concomitant]
     Active Substance: FAMOTIDINE
     Indication: GASTROOESOPHAGEAL REFLUX DISEASE
     Route: 065
  7. VITAMIN B12 [Concomitant]
     Active Substance: CYANOCOBALAMIN
     Indication: SUPPLEMENTATION THERAPY
     Route: 065
  8. CALCIUM [Concomitant]
     Active Substance: CALCIUM
     Indication: SUPPLEMENTATION THERAPY
     Route: 065
  9. ZYRTEC [Concomitant]
     Active Substance: CETIRIZINE HYDROCHLORIDE
     Indication: HYPERSENSITIVITY
     Route: 065

REACTIONS (1)
  - Thrombosis [Fatal]

NARRATIVE: CASE EVENT DATE: 20201014
